FAERS Safety Report 7680006-X (Version None)
Quarter: 2011Q3

REPORT INFORMATION
  Report Type: 
  Country: None (occurrence: None)
  Receive Date: 20110812
  Receipt Date: 20110802
  Transmission Date: 20111222
  Serious: Yes (Hospitalization)
  Sender: FDA-Public Use
  Company Number: JP-CEPHALON-2011002479

PATIENT
  Age: 81 Year
  Sex: Male

DRUGS (6)
  1. BENDAMUSTINE HCL [Suspect]
     Indication: B-CELL LYMPHOMA
     Route: 042
     Dates: start: 20110419, end: 20110420
  2. REBAMIPIDE [Suspect]
     Dates: end: 20110428
  3. BENDAMUSTINE HCL [Suspect]
     Route: 042
     Dates: start: 20110623, end: 20110624
  4. BENDAMUSTINE HCL [Suspect]
     Route: 042
     Dates: start: 20110602, end: 20110603
  5. AMLODIPINE BESYLATE [Suspect]
     Dates: end: 20110428
  6. ACETAMINOPHEN [Suspect]
     Dates: end: 20110428

REACTIONS (4)
  - RASH [None]
  - PYREXIA [None]
  - INTERSTITIAL LUNG DISEASE [None]
  - NEUTROPENIA [None]
